FAERS Safety Report 9006462 (Version 1)
Quarter: 2013Q1

REPORT INFORMATION
  Report Type: Spontaneous
  Country: US (occurrence: US)
  Receive Date: 20130110
  Receipt Date: 20130110
  Transmission Date: 20140127
  Serious: No
  Sender: FDA-Public Use
  Company Number: US-PFIZER INC-2013009597

PATIENT
  Age: 60 Year
  Sex: Female
  Weight: 65.31 kg

DRUGS (4)
  1. NEURONTIN [Suspect]
     Indication: NEUROPATHY PERIPHERAL
     Dosage: 1200 MG, 3X/DAY
  2. METHADONE [Concomitant]
     Indication: NEURALGIA
     Dosage: UNK, 3X/DAY (5MG IN THE MORNING, 5MG IN THE AFTERNOON AND 7.5MG AT NIGHT)
  3. SYNTHROID [Concomitant]
     Indication: THYROID DISORDER
     Dosage: 75 UG, DAILY
  4. HYDROCHLOROTHIAZIDE [Concomitant]
     Indication: DIURETIC THERAPY
     Dosage: 25 MG, DAILY

REACTIONS (1)
  - Drug ineffective [Unknown]
